FAERS Safety Report 5075726-X (Version None)
Quarter: 2006Q3

REPORT INFORMATION
  Report Type: 
  Country: None (occurrence: None)
  Receive Date: 20060804
  Receipt Date: 20060726
  Transmission Date: 20061208
  Serious: Yes (Death, Hospitalization)
  Sender: FDA-Public Use
  Company Number: GBWYE370926JUL06

PATIENT
  Age: 91 Year
  Sex: Female

DRUGS (5)
  1. IBUPROFEN [Suspect]
     Indication: OSTEOARTHRITIS
  2. BUMETANIDE [Suspect]
     Indication: HYPERTENSION
  3. DICLOFENAC (DICLOFENAC, , 0) [Suspect]
     Indication: OSTEOARTHRITIS
  4. DIGOXIN [Suspect]
  5. SPIRONOLACTONE [Suspect]
     Indication: HYPERTENSION

REACTIONS (4)
  - BLOOD POTASSIUM INCREASED [None]
  - FALL [None]
  - RENAL FAILURE [None]
  - THERAPEUTIC AGENT TOXICITY [None]
